FAERS Safety Report 15372891 (Version 4)
Quarter: 2018Q4

REPORT INFORMATION
  Report Type: Spontaneous
  Country: DE (occurrence: DE)
  Receive Date: 20180912
  Receipt Date: 20181002
  Transmission Date: 20190204
  Serious: Yes (Hospitalization, Other)
  Sender: FDA-Public Use
  Company Number: DE-BEH-2018094662

PATIENT
  Age: 69 Year
  Sex: Male

DRUGS (21)
  1. PRIVIGEN [Suspect]
     Active Substance: HUMAN IMMUNOGLOBULIN G
     Dosage: 20 G, TOT
     Route: 065
     Dates: start: 20180629
  2. CARFILZOMIB [Suspect]
     Active Substance: CARFILZOMIB
     Dosage: 80 MG, TOT
     Route: 065
     Dates: start: 20180809
  3. PANTOPRAZOLE [Concomitant]
     Active Substance: PANTOPRAZOLE
     Dosage: UNK, QD
     Route: 065
  4. SIMVASTATIN. [Concomitant]
     Active Substance: SIMVASTATIN
     Route: 065
  5. PRIVIGEN [Suspect]
     Active Substance: HUMAN IMMUNOGLOBULIN G
     Dosage: 20 G, UNK
     Route: 065
     Dates: start: 20180910
  6. HCT [Concomitant]
     Active Substance: HYDROCHLOROTHIAZIDE
     Dosage: UNK, OD
     Route: 065
  7. NEPRESOL                           /00007602/ [Concomitant]
     Active Substance: HYDRALAZINE HYDROCHLORIDE
     Dosage: UNK, OD
     Route: 065
  8. CARFILZOMIB [Suspect]
     Active Substance: CARFILZOMIB
     Dosage: 50 MG, TOT
     Route: 065
     Dates: start: 20180802
  9. ASA [Concomitant]
     Active Substance: ASPIRIN
     Dosage: UNK, OD
     Route: 065
  10. SITAGLIPTIN [Concomitant]
     Active Substance: SITAGLIPTIN
     Dosage: UNK, OD
     Route: 065
  11. VELCADE [Concomitant]
     Active Substance: BORTEZOMIB
     Dosage: UNK
     Route: 065
     Dates: start: 201607
  12. PRIVIGEN [Suspect]
     Active Substance: HUMAN IMMUNOGLOBULIN G
     Indication: PLASMA CELL MYELOMA
     Dosage: 20 G, TOT
     Route: 065
     Dates: start: 20180810
  13. PRIVIGEN [Suspect]
     Active Substance: HUMAN IMMUNOGLOBULIN G
     Dosage: 20 G, TOT
     Route: 065
     Dates: start: 20180514
  14. CARFILZOMIB [Suspect]
     Active Substance: CARFILZOMIB
     Indication: PLASMA CELL MYELOMA
     Dosage: 80 MG, UNK
     Route: 065
     Dates: start: 20180809
  15. CARFILZOMIB [Suspect]
     Active Substance: CARFILZOMIB
     Dosage: 50 MG, TOT
     Route: 065
     Dates: start: 20180803
  16. CLEXANE [Concomitant]
     Active Substance: ENOXAPARIN SODIUM
     Dosage: UNK, QD
     Route: 065
  17. METOPROLOL. [Concomitant]
     Active Substance: METOPROLOL
     Dosage: UNK, BID
     Route: 065
  18. MOXONIDINE [Concomitant]
     Active Substance: MOXONIDINE
     Dosage: UNK, BID
     Route: 065
  19. AMLODIPINE [Concomitant]
     Active Substance: AMLODIPINE BESYLATE
     Dosage: UNK, QD
     Route: 065
  20. CYCLOPHOSPHAMIDE. [Concomitant]
     Active Substance: CYCLOPHOSPHAMIDE
     Dosage: UNK
     Route: 065
     Dates: start: 201607
  21. AMITRIPTYLINE [Concomitant]
     Active Substance: AMITRIPTYLINE
     Dosage: UNK, OD
     Route: 065

REACTIONS (11)
  - Burning sensation [Not Recovered/Not Resolved]
  - Cardiac failure [Recovering/Resolving]
  - Pulmonary oedema [Recovering/Resolving]
  - Blood pressure increased [Recovering/Resolving]
  - Erythema [Unknown]
  - Nausea [Unknown]
  - Dyspnoea [Recovering/Resolving]
  - Cough [Recovering/Resolving]
  - Pyrexia [Recovered/Resolved]
  - Hypertensive heart disease [Recovering/Resolving]
  - Wheezing [Recovering/Resolving]

NARRATIVE: CASE EVENT DATE: 201808
